FAERS Safety Report 25310231 (Version 5)
Quarter: 2025Q2

REPORT INFORMATION
  Report Type: Report from Study
  Country: CA (occurrence: CA)
  Receive Date: 20250514
  Receipt Date: 20250623
  Transmission Date: 20250717
  Serious: Yes (Hospitalization, Other)
  Sender: JOHNSON AND JOHNSON
  Company Number: CA-JNJFOC-20241260560

PATIENT
  Age: 80 Year
  Sex: Female

DRUGS (3)
  1. SIMPONI [Suspect]
     Active Substance: GOLIMUMAB
     Indication: Rheumatoid arthritis
     Dosage: LAST SIMPONI DOSE WAS ON 24-DEC-2024
     Route: 058
     Dates: start: 20240903
  2. SIMPONI [Suspect]
     Active Substance: GOLIMUMAB
     Route: 058
     Dates: start: 20250410
  3. SIMPONI [Suspect]
     Active Substance: GOLIMUMAB
     Dosage: LAST SIMPONI DOSE WAS ON 24-DEC-2024?10-APR-2025 DOSE
     Route: 058
     Dates: start: 20240903

REACTIONS (8)
  - Patella replacement [Recovering/Resolving]
  - Wound dehiscence [Recovered/Resolved]
  - Incision site haemorrhage [Recovering/Resolving]
  - Cyst [Not Recovered/Not Resolved]
  - Cellulitis [Recovering/Resolving]
  - Urinary tract infection [Unknown]
  - Impaired healing [Not Recovered/Not Resolved]
  - Scar [Unknown]

NARRATIVE: CASE EVENT DATE: 20250320
